FAERS Safety Report 4887549-2 (Version None)
Quarter: 2006Q1

REPORT INFORMATION
  Report Type: 
  Country: None (occurrence: None)
  Receive Date: 20060118
  Receipt Date: 20060105
  Transmission Date: 20060701
  Serious: Yes (Hospitalization)
  Sender: FDA-Public Use
  Company Number: 218162

PATIENT
  Age: 48 Year
  Sex: Female
  Weight: 45 kg

DRUGS (7)
  1. RITUXAN [Suspect]
     Indication: GLOMERULONEPHRITIS CHRONIC
     Dosage: 150 MG/M2, INTRAVENOUS
     Route: 042
     Dates: start: 20040911, end: 20040914
  2. FK-506 (TACROLIMUS) [Suspect]
     Indication: DRUG USE FOR UNKNOWN INDICATION
  3. PREDNISOLONE [Suspect]
     Indication: DRUG USE FOR UNKNOWN INDICATION
  4. MYCOPHENOLATE MOFETIL (MYCOPHENOLATE MOFETIL) [Suspect]
  5. BASILIXMAB (BASILIXIMAB) [Suspect]
  6. GANCICLOVIR SODIUM [Suspect]
     Indication: CYTOMEGALOVIRUS INFECTION
     Dates: start: 20050921
  7. PLASMAPHERESIS (PLASMA PHERESIS) [Concomitant]

REACTIONS (10)
  - AGRANULOCYTOSIS [None]
  - CYTOMEGALOVIRUS INFECTION [None]
  - DIARRHOEA [None]
  - GENERALISED OEDEMA [None]
  - HAEMODIALYSIS [None]
  - HYPOGAMMAGLOBULINAEMIA [None]
  - MYELOID MATURATION ARREST [None]
  - PYREXIA [None]
  - URINE OUTPUT DECREASED [None]
  - WEIGHT INCREASED [None]
